FAERS Safety Report 4541994-3 (Version None)
Quarter: 2004Q4

REPORT INFORMATION
  Report Type: 
  Country: None (occurrence: None)
  Receive Date: 20041227
  Receipt Date: 20041213
  Transmission Date: 20050328
  Serious: Yes (Hospitalization, Disabling)
  Sender: FDA-Public Use
  Company Number: DSA_70538_2004

PATIENT
  Age: 77 Year
  Sex: Female
  Weight: 58.9676 kg

DRUGS (9)
  1. DARVOCET-N 100 [Suspect]
     Indication: PAIN
     Dosage: DF
     Dates: start: 20020101, end: 20041001
  2. FORTEO [Concomitant]
  3. ZOLOFT [Concomitant]
  4. LEXAPRO [Concomitant]
  5. VITAMIN E [Concomitant]
  6. MULTI-VITAMINS [Concomitant]
  7. CALCIUMS CITRATE WITH VITAMIN D [Concomitant]
  8. STOL SOFTENER [Concomitant]
  9. IRON [Concomitant]

REACTIONS (7)
  - ASTHENIA [None]
  - CONSTIPATION [None]
  - FALL [None]
  - HIP FRACTURE [None]
  - PAIN [None]
  - UPPER LIMB FRACTURE [None]
  - WEIGHT DECREASED [None]
